FAERS Safety Report 8470388 (Version 4)
Quarter: 2013Q1

REPORT INFORMATION
  Report Type: Spontaneous
  Country: US (occurrence: US)
  Receive Date: 20120321
  Receipt Date: 20130315
  Transmission Date: 20140127
  Serious: Yes (Death)
  Sender: FDA-Public Use
  Company Number: US-ELI_LILLY_AND_COMPANY-US201112003454

PATIENT
  Sex: Male

DRUGS (2)
  1. FORTEO [Suspect]
     Indication: OSTEOPOROSIS
     Dosage: 20 UG, QD
     Route: 065
     Dates: start: 20111021
  2. FORTEO [Suspect]
     Dosage: 20 UG, QD

REACTIONS (3)
  - Lung neoplasm malignant [Fatal]
  - Bone pain [Unknown]
  - Injection site erythema [Recovered/Resolved]
